FAERS Safety Report 13025513 (Version 1)
Quarter: 2016Q4

REPORT INFORMATION
  Report Type: Spontaneous
  Country: US (occurrence: US)
  Receive Date: 20161214
  Receipt Date: 20161214
  Transmission Date: 20170207
  Serious: Yes (Hospitalization, Other)
  Sender: FDA-Public Use
  Company Number: US-SHIRE-US201618625

PATIENT
  Sex: Female

DRUGS (1)
  1. PENTASA [Suspect]
     Active Substance: MESALAMINE
     Indication: CROHN^S DISEASE
     Dosage: UNK, UNKNOWN;REPORTED AS 250 MG OR 500 MG CAPSULES (PATIENT DOSE UNKNOWN)
     Route: 048

REACTIONS (6)
  - Vomiting [Unknown]
  - Malaise [Unknown]
  - Crohn^s disease [Unknown]
  - Product use issue [Unknown]
  - Diarrhoea [Unknown]
  - Abnormal faeces [Unknown]

NARRATIVE: CASE EVENT DATE: 20161130
